FAERS Safety Report 17064483 (Version 1)
Quarter: 2019Q4

REPORT INFORMATION
  Report Type: Spontaneous
  Country: US (occurrence: US)
  Receive Date: 20191122
  Receipt Date: 20191122
  Transmission Date: 20200122
  Serious: Yes (Congenital Anomaly, Other)
  Sender: FDA-Public Use
  Company Number: US-JNJFOC-20191122141

PATIENT
  Sex: Female

DRUGS (1)
  1. TOPAMAX [Suspect]
     Active Substance: TOPIRAMATE
     Indication: MIGRAINE
     Route: 064

REACTIONS (6)
  - Pectus excavatum [Not Recovered/Not Resolved]
  - Nose deformity [Not Recovered/Not Resolved]
  - Foetal exposure during pregnancy [Unknown]
  - Anodontia [Unknown]
  - Cleft lip [Recovering/Resolving]
  - Cleft palate [Recovering/Resolving]

NARRATIVE: CASE EVENT DATE: 200502
